FAERS Safety Report 16690132 (Version 3)
Quarter: 2019Q3

REPORT INFORMATION
  Report Type: Spontaneous
  Country: US (occurrence: US)
  Receive Date: 20190809
  Receipt Date: 20190927
  Transmission Date: 20191004
  Serious: Yes (Death, Other)
  Sender: FDA-Public Use
  Company Number: US-LA JOLLA PHARMACEUTICAL COMPANY-0000313

PATIENT
  Sex: Female

DRUGS (2)
  1. NOREPINEPHRINE. [Concomitant]
     Active Substance: NOREPINEPHRINE
     Dosage: UNK, HIGH DOSE
  2. GIAPREZA [Suspect]
     Active Substance: ANGIOTENSIN II
     Indication: HYPOTENSION
     Dosage: UNK
     Dates: start: 20190728, end: 20190729

REACTIONS (3)
  - Left ventricular failure [Unknown]
  - Cardiogenic shock [Unknown]
  - Death [Fatal]

NARRATIVE: CASE EVENT DATE: 20190728
